FAERS Safety Report 18137947 (Version 1)
Quarter: 2020Q3

REPORT INFORMATION
  Report Type: Report from Study
  Country: ES (occurrence: ES)
  Receive Date: 20200812
  Receipt Date: 20200812
  Transmission Date: 20201103
  Serious: Yes (Death, Other)
  Sender: FDA-Public Use
  Company Number: ES-AUROBINDO-AUR-APL-2020-038218

PATIENT
  Age: 56 Year
  Sex: Male

DRUGS (2)
  1. SPIRONOLACTONE. [Suspect]
     Active Substance: SPIRONOLACTONE
     Indication: ASCITES
     Dosage: 100 MILLIGRAM, ONCE A DAY
     Route: 065
  2. TORASEMIDE [Suspect]
     Active Substance: TORSEMIDE
     Indication: PRODUCT USED FOR UNKNOWN INDICATION
     Dosage: UNK
     Route: 065

REACTIONS (4)
  - Hepatic failure [Fatal]
  - Agranulocytosis [Fatal]
  - Hypoalbuminaemia [Fatal]
  - Renal failure [Fatal]
